FAERS Safety Report 8202356-0 (Version None)
Quarter: 2012Q1

REPORT INFORMATION
  Report Type: 
  Country: None (occurrence: None)
  Receive Date: 20120308
  Receipt Date: 20120222
  Transmission Date: 20120608
  Serious: Yes (Congenital Anomaly)
  Sender: FDA-Public Use
  Company Number: UCM201202-000015

PATIENT
  Age: 79 Day

DRUGS (2)
  1. TOPIRAMATE [Suspect]
     Dosage: 200 MG, TRANSPLACENTAL
     Route: 064
  2. LAMOTRIGINE [Suspect]
     Dosage: 100 MG, TRANSPLACENTAL
     Route: 064

REACTIONS (2)
  - INGUINAL HERNIA [None]
  - MATERNAL DRUGS AFFECTING FOETUS [None]
